FAERS Safety Report 12446289 (Version 1)
Quarter: 2016Q2

REPORT INFORMATION
  Report Type: Spontaneous
  Country: US (occurrence: US)
  Receive Date: 20160608
  Receipt Date: 20160608
  Transmission Date: 20160815
  Serious: No
  Sender: FDA-Public Use
  Company Number: US-BIOGEN-2016BI00241989

PATIENT
  Sex: Female

DRUGS (1)
  1. TECFIDERA [Suspect]
     Active Substance: DIMETHYL FUMARATE
     Indication: MULTIPLE SCLEROSIS
     Route: 065
     Dates: start: 20150731, end: 20151105

REACTIONS (5)
  - Malaise [Unknown]
  - Mouth swelling [Unknown]
  - Influenza like illness [Not Recovered/Not Resolved]
  - Asthenia [Unknown]
  - Lip swelling [Unknown]
